FAERS Safety Report 12968510 (Version 1)
Quarter: 2016Q4

REPORT INFORMATION
  Report Type: Spontaneous
  Country: US (occurrence: US)
  Receive Date: 20161120
  Receipt Date: 20161120
  Transmission Date: 20170207
  Serious: Yes (Life-Threatening)
  Sender: FDA-Public Use
  Company Number: None

PATIENT
  Sex: Male

DRUGS (1)
  1. FORTEO [Suspect]
     Active Substance: TERIPARATIDE
     Route: 058
     Dates: start: 20161001, end: 20161101

REACTIONS (5)
  - Blood pressure increased [None]
  - Blood calcium increased [None]
  - Blood sodium increased [None]
  - Thrombosis [None]
  - Pulmonary embolism [None]
